FAERS Safety Report 8960465 (Version 1)
Quarter: 2012Q4

REPORT INFORMATION
  Report Type: Spontaneous
  Country: JP (occurrence: None)
  Receive Date: 20121203
  Receipt Date: 20121203
  Transmission Date: 20130627
  Serious: No
  Sender: FDA-Public Use
  Company Number: VAL_01015_2012

PATIENT
  Age: 80 Year
  Sex: Male

DRUGS (2)
  1. LOPRESSOR [Suspect]
     Indication: HYPERTENSION
     Dosage: 40 mg, daily in 2 divided doses Oral
  2. ATELEC [Concomitant]

REACTIONS (10)
  - Oliguria [None]
  - Nephrogenic anaemia [None]
  - Coronary artery disease [None]
  - Refusal of treatment by patient [None]
  - Cerebral ischaemia [None]
  - Arrhythmia [None]
  - Tachycardia [None]
  - Extrasystoles [None]
  - Renal failure [None]
  - Blood potassium increased [None]
